FAERS Safety Report 5826575-3 (Version None)
Quarter: 2008Q3

REPORT INFORMATION
  Report Type: 
  Country: None (occurrence: None)
  Receive Date: 20080729
  Receipt Date: 20080723
  Transmission Date: 20090109
  Serious: Yes (Hospitalization)
  Sender: FDA-Public Use
  Company Number: US-ELI_LILLY_AND_COMPANY-US200807004885

PATIENT
  Sex: Female
  Weight: 67.574 kg

DRUGS (3)
  1. BYETTA [Suspect]
     Indication: TYPE 2 DIABETES MELLITUS
     Dosage: 5 UG, 2/D
     Route: 058
     Dates: start: 20070101, end: 20070101
  2. BYETTA [Suspect]
     Dosage: 10 UG, 2/D
     Route: 058
     Dates: start: 20070101
  3. METFORMIN HCL [Concomitant]
     Indication: TYPE 2 DIABETES MELLITUS
     Dosage: 1000 MG, 2/D

REACTIONS (8)
  - ANAEMIA [None]
  - CONTUSION [None]
  - EXCORIATION [None]
  - FALL [None]
  - FATIGUE [None]
  - HYPERSOMNIA [None]
  - JOINT INJURY [None]
  - WEIGHT DECREASED [None]
